FAERS Safety Report 7088870-2 (Version None)
Quarter: 2010Q4

REPORT INFORMATION
  Report Type: 
  Country: None (occurrence: None)
  Receive Date: 20101108
  Receipt Date: 20101104
  Transmission Date: 20110411
  Serious: Yes (Hospitalization)
  Sender: FDA-Public Use
  Company Number: JP-PFIZER INC-2010140343

PATIENT
  Age: 59 Year
  Sex: Male

DRUGS (3)
  1. CYTOTEC [Suspect]
  2. CLARITHROMYCIN [Concomitant]
  3. BUCILLAMINE [Concomitant]

REACTIONS (1)
  - INTERSTITIAL LUNG DISEASE [None]
